FAERS Safety Report 12637458 (Version 1)
Quarter: 2016Q3

REPORT INFORMATION
  Report Type: Spontaneous
  Country: US (occurrence: US)
  Receive Date: 20160809
  Receipt Date: 20160809
  Transmission Date: 20161109
  Serious: No
  Sender: FDA-Public Use
  Company Number: US-BEH-2016062730

PATIENT
  Sex: Female
  Weight: 69 kg

DRUGS (22)
  1. MICROGESTIN FE [Concomitant]
     Active Substance: ETHINYL ESTRADIOL\FERROUS FUMARATE\NORETHINDRONE ACETATE
  2. PRIVIGEN [Suspect]
     Active Substance: HUMAN IMMUNOGLOBULIN G
     Indication: IMMUNODEFICIENCY COMMON VARIABLE
     Route: 042
  3. PRIVIGEN [Suspect]
     Active Substance: HUMAN IMMUNOGLOBULIN G
     Indication: SELECTIVE IGG SUBCLASS DEFICIENCY
     Route: 058
  4. HEPARIN [Concomitant]
     Active Substance: HEPARIN SODIUM
  5. TRAMADOL. [Concomitant]
     Active Substance: TRAMADOL
  6. LEVAQUIN [Concomitant]
     Active Substance: LEVOFLOXACIN
  7. MAALOX ADVANCED [Concomitant]
  8. CORTISONE [Concomitant]
     Active Substance: CORTISONE\HYDROCORTISONE
  9. CORTISONE [Concomitant]
     Active Substance: CORTISONE\HYDROCORTISONE
  10. ACETAMINOPHEN. [Concomitant]
     Active Substance: ACETAMINOPHEN
  11. SOLU-MEDROL [Concomitant]
     Active Substance: METHYLPREDNISOLONE SODIUM SUCCINATE
  12. KEPPRA [Concomitant]
     Active Substance: LEVETIRACETAM
  13. PRIVIGEN [Suspect]
     Active Substance: HUMAN IMMUNOGLOBULIN G
     Indication: STIFF PERSON SYNDROME
     Route: 042
  14. NORMAL SALINE [Concomitant]
     Active Substance: SODIUM CHLORIDE
  15. EPIPEN [Concomitant]
     Active Substance: EPINEPHRINE
  16. DIPHENHYDRAMINE. [Concomitant]
     Active Substance: DIPHENHYDRAMINE
  17. SODIUM CHLORIDE. [Concomitant]
     Active Substance: SODIUM CHLORIDE
  18. ROPINIROLE. [Concomitant]
     Active Substance: ROPINIROLE
  19. DIAZEPAM. [Concomitant]
     Active Substance: DIAZEPAM
  20. BACLOFEN. [Concomitant]
     Active Substance: BACLOFEN
  21. LIDOCAINE. [Concomitant]
     Active Substance: LIDOCAINE
  22. IBUPROFEN. [Concomitant]
     Active Substance: IBUPROFEN

REACTIONS (2)
  - Sinusitis [Unknown]
  - Ear infection [Unknown]
